FAERS Safety Report 8020378-X (Version None)
Quarter: 2012Q1

REPORT INFORMATION
  Report Type: 
  Country: None (occurrence: None)
  Receive Date: 20120103
  Receipt Date: 20111221
  Transmission Date: 20120608
  Serious: Yes (Hospitalization, Other)
  Sender: FDA-Public Use
  Company Number: US-ELI_LILLY_AND_COMPANY-US201201000031

PATIENT
  Sex: Female

DRUGS (17)
  1. VITAMIN D [Concomitant]
     Dosage: UNK, UNKNOWN
     Route: 065
  2. FOLIC ACID [Concomitant]
     Dosage: 1 MG, UNKNOWN
     Route: 065
  3. ASPIRIN [Concomitant]
     Dosage: 81 MG, UNKNOWN
     Route: 065
  4. NEXIUM [Concomitant]
     Dosage: UNK, UNKNOWN
     Route: 065
  5. MECLIZINE [Concomitant]
     Dosage: 25 MG, OTHER (QID PRN)
     Route: 065
  6. MELOXICAM [Concomitant]
     Dosage: 7.5 MG, QD
     Route: 065
  7. ALPRAZOLAM [Concomitant]
     Dosage: UNK, UNKNOWN (TID PRN)
     Route: 065
  8. SIMVASTATIN [Concomitant]
     Dosage: 40 MG, QD
     Route: 065
  9. ADVAIR DISKUS 100/50 [Concomitant]
     Dosage: UNK, QD
     Route: 065
  10. METHADONE HCL [Concomitant]
     Dosage: UNK, QID
     Route: 065
  11. SPIRIVA [Concomitant]
     Dosage: UNK, QD
     Route: 065
  12. SYMBYAX [Concomitant]
     Dosage: UNK, QD
     Route: 065
  13. FUROSEMIDE [Concomitant]
     Dosage: 40 MG, QD
     Route: 065
  14. FORTEO [Suspect]
     Indication: OSTEOPOROSIS
     Dosage: 20 UG, QD
     Route: 065
  15. VENTOLIN HFA [Concomitant]
     Dosage: UNK, UNKNOWN
     Route: 065
  16. HYDROCHLOROTHIAZIDE [Concomitant]
     Dosage: UNK, QD
     Route: 065
  17. CYCLOBENZAPRINE [Concomitant]
     Dosage: 5 MG, OTHER (TID PRN)
     Route: 065

REACTIONS (3)
  - HIP FRACTURE [None]
  - FALL [None]
  - IMPAIRED HEALING [None]
